FAERS Safety Report 11874233 (Version 1)
Quarter: 2015Q4

REPORT INFORMATION
  Report Type: Report from Study
  Country: JP (occurrence: JP)
  Receive Date: 20151229
  Receipt Date: 20151229
  Transmission Date: 20160305
  Serious: Yes (Death, Disabling, Other)
  Sender: FDA-Public Use
  Company Number: JP-009507513-1511JPN008292

PATIENT
  Age: 78 Year
  Sex: Male

DRUGS (12)
  1. WARFARIN POTASSIUM [Concomitant]
     Active Substance: WARFARIN POTASSIUM
     Dosage: 3 MG, QD; FORMULATION: POR
     Route: 048
     Dates: start: 20100506, end: 20150309
  2. AVAPRO [Concomitant]
     Active Substance: IRBESARTAN
     Dosage: 200 MG, QD; FORMULATION: POR
     Route: 048
     Dates: start: 20110628, end: 20150408
  3. DIAZOXIDE CAPSULES 25 MG ^MSD^ [Suspect]
     Active Substance: DIAZOXIDE
     Indication: HYPERINSULINAEMIC HYPOGLYCAEMIA
     Dosage: 75 MG, BID
     Route: 048
     Dates: start: 20150210, end: 20150217
  4. HUMALOG [Concomitant]
     Active Substance: INSULIN LISPRO
     Dosage: UNK
     Dates: start: 20030918, end: 20150209
  5. CYMBALTA [Concomitant]
     Active Substance: DULOXETINE HYDROCHLORIDE
     Dosage: 20 MG, QD; FORMULATION: POR
     Route: 048
     Dates: start: 20140108, end: 20150209
  6. LASIX [Concomitant]
     Active Substance: FUROSEMIDE
     Dosage: 20 MG, QD; FORMULATION: POR
     Route: 048
     Dates: start: 20110215, end: 20150209
  7. MAGNESIUM OXIDE. [Concomitant]
     Active Substance: MAGNESIUM OXIDE
     Dosage: 1.5 G, QD; FORMULATION: POR
     Route: 048
     Dates: start: 20100408, end: 20150309
  8. CRESTOR [Concomitant]
     Active Substance: ROSUVASTATIN CALCIUM
     Indication: LIPIDS ABNORMAL
     Dosage: 2.5 MG, QD; FORMULATION: POR
     Route: 048
     Dates: start: 20111028, end: 20150302
  9. ALOSITOL [Concomitant]
     Active Substance: ALLOPURINOL
     Indication: HYPERURICAEMIA
     Dosage: 100 MG, QD; FORMULATION: POR
     Route: 048
     Dates: start: 20131217, end: 20150209
  10. ARTIST [Concomitant]
     Active Substance: CARVEDILOL
     Indication: HYPERTENSION
     Dosage: 5 MG, QD; FORMULATION: POR
     Route: 048
     Dates: start: 20110628, end: 20150408
  11. NORVASC [Concomitant]
     Active Substance: AMLODIPINE BESYLATE
     Indication: HYPERTENSION
     Dosage: 5 MG, QD; FORMULATION: POR
     Route: 048
     Dates: start: 20120501, end: 20150406
  12. TAKEPRON [Concomitant]
     Active Substance: LANSOPRAZOLE
     Dosage: 15 MG, QD
     Route: 048
     Dates: start: 20101217, end: 20150408

REACTIONS (3)
  - Drug effect incomplete [Unknown]
  - Hypoglycaemia [Not Recovered/Not Resolved]
  - Hepatic cancer [Fatal]

NARRATIVE: CASE EVENT DATE: 20150210
